FAERS Safety Report 6216752-4 (Version None)
Quarter: 2009Q2

REPORT INFORMATION
  Report Type: 
  Country: None (occurrence: None)
  Receive Date: 20090603
  Receipt Date: 20090603
  Transmission Date: 20091009
  Serious: Yes (Hospitalization)
  Sender: FDA-Public Use
  Company Number: None

PATIENT
  Sex: Female
  Weight: 70 kg

DRUGS (6)
  1. PEG-L ASPARAGINASE (K-H) [Suspect]
     Dosage: 4400 IU
  2. VINCRISTINE SULFATE [Suspect]
     Dosage: 8 MG
  3. CYTARABINE [Suspect]
     Dosage: 70 MG
  4. DAUNORUBICIN HCL [Suspect]
     Dosage: 173 MG
  5. METHOTREXATE [Suspect]
     Dosage: 15MG
  6. METHYLPREDNISOLONE 4MG TAB [Suspect]
     Dosage: 2940 MG

REACTIONS (6)
  - ANTITHROMBIN III DECREASED [None]
  - BLOOD FIBRINOGEN DECREASED [None]
  - HEAD INJURY [None]
  - HEADACHE [None]
  - NAUSEA [None]
  - TRANSVERSE SINUS THROMBOSIS [None]
